FAERS Safety Report 6933939-3 (Version None)
Quarter: 2010Q3

REPORT INFORMATION
  Report Type: 
  Country: None (occurrence: None)
  Receive Date: 20100820
  Receipt Date: 20100806
  Transmission Date: 20110219
  Serious: Yes (Other)
  Sender: FDA-Public Use
  Company Number: FR-CELGENEUS-056-50794-10072048

PATIENT
  Age: 82 Year
  Sex: Female

DRUGS (1)
  1. VIDAZA [Suspect]
     Route: 065
     Dates: start: 20091001, end: 20100101

REACTIONS (2)
  - DRUG INTOLERANCE [None]
  - NEUROPATHY PERIPHERAL [None]
